FAERS Safety Report 9362844 (Version 4)
Quarter: 2013Q3

REPORT INFORMATION
  Report Type: Spontaneous
  Country: FR (occurrence: FR)
  Receive Date: 20130624
  Receipt Date: 20130731
  Transmission Date: 20140515
  Serious: Yes (Hospitalization, Other)
  Sender: FDA-Public Use
  Company Number: FR-AMGEN-FRASP2013043166

PATIENT
  Sex: Female

DRUGS (2)
  1. XGEVA [Suspect]
     Indication: PRODUCT USED FOR UNKNOWN INDICATION
     Dosage: UNK
  2. MORPHIN                            /00036302/ [Concomitant]

REACTIONS (8)
  - Vomiting [Unknown]
  - Nausea [Unknown]
  - Metastatic pain [Unknown]
  - Metastasis [Unknown]
  - Pain [Recovered/Resolved]
  - Dyspnoea [Unknown]
  - Musculoskeletal stiffness [Recovered/Resolved]
  - Gastrointestinal disorder [Unknown]
